FAERS Safety Report 7637852-8 (Version None)
Quarter: 2011Q3

REPORT INFORMATION
  Report Type: 
  Country: None (occurrence: None)
  Receive Date: 20110727
  Receipt Date: 20110720
  Transmission Date: 20111222
  Serious: Yes (Other)
  Sender: FDA-Public Use
  Company Number: SY-AMGEN-SYRSP2011037323

PATIENT
  Sex: Female

DRUGS (1)
  1. ENBREL [Suspect]
     Indication: RHEUMATOID ARTHRITIS
     Dosage: 50 MG, WEEKLY
     Route: 058
     Dates: start: 20100101, end: 20110101

REACTIONS (4)
  - RHEUMATOID ARTHRITIS [None]
  - COUGH [None]
  - LUNG DISORDER [None]
  - DYSPNOEA [None]
